FAERS Safety Report 25472374 (Version 1)
Quarter: 2025Q2

REPORT INFORMATION
  Report Type: Spontaneous
  Country: CN (occurrence: CN)
  Receive Date: 20250624
  Receipt Date: 20250624
  Transmission Date: 20250717
  Serious: Yes (Other)
  Sender: INNOVIVA
  Company Number: 2025GOSUN000042

PATIENT

DRUGS (1)
  1. ZEVTERA [Suspect]
     Active Substance: CEFTOBIPROLE MEDOCARIL SODIUM
     Indication: Product used for unknown indication
     Route: 041

REACTIONS (1)
  - Epilepsy [Recovering/Resolving]
